FAERS Safety Report 11531043 (Version 1)
Quarter: 2015Q3

REPORT INFORMATION
  Report Type: Spontaneous
  Country: US (occurrence: US)
  Receive Date: 20150903
  Receipt Date: 20150903
  Transmission Date: 20151125
  Serious: No
  Sender: FDA-Public Use
  Company Number: US-ELI_LILLY_AND_COMPANY-US201307007822

PATIENT
  Sex: Female

DRUGS (2)
  1. CYMBALTA [Suspect]
     Active Substance: DULOXETINE HYDROCHLORIDE
     Indication: MUSCULOSKELETAL PAIN
  2. CYMBALTA [Suspect]
     Active Substance: DULOXETINE HYDROCHLORIDE
     Indication: DEPRESSION
     Dosage: 60 MG, QD
     Route: 065
     Dates: start: 201102, end: 20131225

REACTIONS (16)
  - Dysstasia [Unknown]
  - Amnesia [Unknown]
  - Pain [Unknown]
  - Pruritus [Unknown]
  - Asthenia [Unknown]
  - Feeling abnormal [Unknown]
  - Mental impairment [Unknown]
  - Arthropathy [Unknown]
  - Musculoskeletal stiffness [Unknown]
  - Drug withdrawal syndrome [Unknown]
  - Injury [Unknown]
  - Lethargy [Unknown]
  - Memory impairment [Unknown]
  - Dizziness [Unknown]
  - Hypoaesthesia [Unknown]
  - Gait disturbance [Unknown]

NARRATIVE: CASE EVENT DATE: 201201
